FAERS Safety Report 24985685 (Version 2)
Quarter: 2025Q3

REPORT INFORMATION
  Report Type: Report from Study
  Country: US (occurrence: US)
  Receive Date: 20250219
  Receipt Date: 20250816
  Transmission Date: 20251020
  Serious: No
  Sender: ALEXION PHARMACEUTICALS
  Company Number: US-AstraZeneca-2018SE23224

PATIENT
  Age: 62 Year
  Sex: Male

DRUGS (28)
  1. NEXIUM [Suspect]
     Active Substance: ESOMEPRAZOLE MAGNESIUM
  2. METOPROLOL SUCCINATE [Suspect]
     Active Substance: METOPROLOL SUCCINATE
  3. ACALABRUTINIB [Suspect]
     Active Substance: ACALABRUTINIB
     Indication: Chronic lymphocytic leukaemia
     Dosage: 100 MILLIGRAM, Q12H
     Dates: start: 20180116
  4. ACALABRUTINIB [Suspect]
     Active Substance: ACALABRUTINIB
     Dosage: 100 MILLIGRAM, Q12H
     Dates: start: 20180116
  5. ACALABRUTINIB [Suspect]
     Active Substance: ACALABRUTINIB
  6. ACALABRUTINIB [Suspect]
     Active Substance: ACALABRUTINIB
  7. NEBUPENT [Concomitant]
     Active Substance: PENTAMIDINE ISETHIONATE
  8. ARMOUR THYROID [Concomitant]
     Active Substance: THYROID, PORCINE
  9. TESTOSTERONE [Concomitant]
     Active Substance: TESTOSTERONE
  10. KAYEXALATE [Concomitant]
     Active Substance: SODIUM POLYSTYRENE SULFONATE
  11. XARELTO [Concomitant]
     Active Substance: RIVAROXABAN
  12. PREDNISONE [Concomitant]
     Active Substance: PREDNISONE
  13. PRAVASTATIN [Concomitant]
     Active Substance: PRAVASTATIN
  14. ZOFRAN [Concomitant]
     Active Substance: ONDANSETRON HYDROCHLORIDE
  15. NABUMETONE [Concomitant]
     Active Substance: NABUMETONE
  16. MUPIROCIN [Concomitant]
     Active Substance: MUPIROCIN
  17. METOPROLOL [Concomitant]
     Active Substance: METOPROLOL
  18. MELOXICAM [Concomitant]
     Active Substance: MELOXICAM
  19. LEVOTHYROXINE [Concomitant]
     Active Substance: LEVOTHYROXINE
  20. FOLIC ACID [Concomitant]
     Active Substance: FOLIC ACID
  21. ULORIC [Concomitant]
     Active Substance: FEBUXOSTAT
  22. ZETIA [Concomitant]
     Active Substance: EZETIMIBE
  23. EPIPEN [Concomitant]
     Active Substance: EPINEPHRINE
  24. DIGOXIN [Concomitant]
     Active Substance: DIGOXIN
  25. COLCHICINE [Concomitant]
     Active Substance: COLCHICINE
  26. ADVAIR HFA [Concomitant]
     Active Substance: FLUTICASONE PROPIONATE\SALMETEROL XINAFOATE
  27. ACYCLOVIR [Concomitant]
     Active Substance: ACYCLOVIR
  28. ELIQUIS [Concomitant]
     Active Substance: APIXABAN

REACTIONS (6)
  - Eye contusion [Not Recovered/Not Resolved]
  - Contusion [Unknown]
  - Ocular hyperaemia [Not Recovered/Not Resolved]
  - Tinnitus [Unknown]
  - Injection site pain [Not Recovered/Not Resolved]
  - Blood blister [Not Recovered/Not Resolved]

NARRATIVE: CASE EVENT DATE: 20180219
